FAERS Safety Report 11665635 (Version 1)
Quarter: 2015Q4

REPORT INFORMATION
  Report Type: Spontaneous
  Country: US (occurrence: US)
  Receive Date: 20151027
  Receipt Date: 20151027
  Transmission Date: 20160304
  Serious: No
  Sender: FDA-Public Use
  Company Number: US-ELI_LILLY_AND_COMPANY-US201001000379

PATIENT
  Sex: Female

DRUGS (7)
  1. ATENOLOL. [Concomitant]
     Active Substance: ATENOLOL
  2. COZAAR [Concomitant]
     Active Substance: LOSARTAN POTASSIUM
  3. FORTEO [Suspect]
     Active Substance: TERIPARATIDE
     Indication: OSTEOPOROSIS
     Dosage: UNK, DAILY (1/D)
     Dates: start: 200804
  4. NEXIUM [Concomitant]
     Active Substance: ESOMEPRAZOLE MAGNESIUM
  5. CALTRATE /00108001/ [Concomitant]
  6. COUMADIN [Concomitant]
     Active Substance: WARFARIN SODIUM
  7. HYDROCODONE [Concomitant]
     Active Substance: HYDROCODONE

REACTIONS (3)
  - Abdominal pain upper [Not Recovered/Not Resolved]
  - Dizziness [Not Recovered/Not Resolved]
  - Blood potassium increased [Not Recovered/Not Resolved]

NARRATIVE: CASE EVENT DATE: 2009
